FAERS Safety Report 4402197-6 (Version None)
Quarter: 2004Q3

REPORT INFORMATION
  Report Type: 
  Country: None (occurrence: None)
  Receive Date: 20040716
  Receipt Date: 20000501
  Transmission Date: 20050211
  Serious: No
  Sender: FDA-Public Use
  Company Number: 02100-JPN-00-0034

PATIENT
  Age: 62 Year
  Sex: Male

DRUGS (10)
  1. CILOSTAZOL [Suspect]
     Indication: ATHEROSCLEROSIS OBLITERANS
     Dosage: 200 MG, ORAL
     Route: 048
  2. CILOSTAZOL [Suspect]
     Indication: CORONARY ARTERY RESTENOSIS
     Dosage: 200 MG, ORAL
     Route: 048
  3. CILOSTAZOL [Suspect]
     Indication: PROPHYLAXIS
     Dosage: 200 MG, ORAL
     Route: 048
  4. DILTIAZEM HYDROCHLORIDE [Concomitant]
  5. ISOSORBIDE MONONITRATE [Concomitant]
  6. PROBUCOL [Concomitant]
  7. PRAVASTATIN SODIUM [Concomitant]
  8. DIHIDROCODEINE PHOSPHATE [Concomitant]
  9. SPARFLOXACIN [Concomitant]
  10. CLARITHROMYCIN [Concomitant]

REACTIONS (15)
  - BLOOD PRESSURE DECREASED [None]
  - GENERALISED ERYTHEMA [None]
  - HAEMATOCRIT DECREASED [None]
  - HAEMOGLOBIN DECREASED [None]
  - LOSS OF CONSCIOUSNESS [None]
  - LYMPHOCYTE PERCENTAGE DECREASED [None]
  - MONOCYTE PERCENTAGE DECREASED [None]
  - MONOCYTE PERCENTAGE INCREASED [None]
  - NAUSEA [None]
  - NEUTROPHIL PERCENTAGE INCREASED [None]
  - PRURITUS GENERALISED [None]
  - PYREXIA [None]
  - RED BLOOD CELL COUNT DECREASED [None]
  - SHOCK [None]
  - WHITE BLOOD CELL COUNT INCREASED [None]
